FAERS Safety Report 10714572 (Version 3)
Quarter: 2015Q1

REPORT INFORMATION
  Report Type: Spontaneous
  Country: ES (occurrence: ES)
  Receive Date: 20150115
  Receipt Date: 20150220
  Transmission Date: 20150721
  Serious: Yes (Other)
  Sender: FDA-Public Use
  Company Number: ES-PFIZER INC-2015014220

PATIENT
  Age: 41 Year
  Sex: Female

DRUGS (2)
  1. ZITHROMAX [Suspect]
     Active Substance: AZITHROMYCIN DIHYDRATE
     Dosage: 500 MG, 1X/DAY AT NIGHT
  2. BUDESONIDE. [Concomitant]
     Active Substance: BUDESONIDE
     Dosage: 1 DF, 2X/DAY
     Route: 055

REACTIONS (4)
  - Dyspnoea [Recovered/Resolved]
  - Product solubility abnormal [Recovered/Resolved]
  - Laryngeal oedema [Recovered/Resolved with Sequelae]
  - Poisoning [Recovered/Resolved]
